FAERS Safety Report 8509704-2 (Version None)
Quarter: 2012Q3

REPORT INFORMATION
  Report Type: 
  Country: None (occurrence: None)
  Receive Date: 20120713
  Receipt Date: 20120706
  Transmission Date: 20120928
  Serious: Yes (Other)
  Sender: FDA-Public Use
  Company Number: US-BAYER-2012-068175

PATIENT
  Age: 19 Year
  Sex: Female

DRUGS (1)
  1. MIRENA [Suspect]
     Indication: CONTRACEPTION
     Dosage: 20 MCG/24HR, CONT
     Route: 015
     Dates: start: 20100909

REACTIONS (19)
  - DEVICE DIFFICULT TO USE [None]
  - PAIN [None]
  - MENSTRUATION DELAYED [None]
  - DEVICE DISLOCATION [None]
  - URINARY TRACT INFECTION [None]
  - ABDOMINAL PAIN LOWER [None]
  - ALTERED STATE OF CONSCIOUSNESS [None]
  - WEIGHT INCREASED [None]
  - VAGINAL INFECTION [None]
  - DEVICE COMPONENT ISSUE [None]
  - GENITAL HAEMORRHAGE [None]
  - ABASIA [None]
  - ACTIVITIES OF DAILY LIVING IMPAIRED [None]
  - BEDRIDDEN [None]
  - PYREXIA [None]
  - ABDOMINAL DISTENSION [None]
  - IRRITABILITY [None]
  - TEARFULNESS [None]
  - OVARIAN CYST [None]
